FAERS Safety Report 23246042 (Version 2)
Quarter: 2023Q4

REPORT INFORMATION
  Report Type: Spontaneous
  Country: HR (occurrence: HR)
  Receive Date: 20231130
  Receipt Date: 20231201
  Transmission Date: 20240109
  Serious: Yes (Hospitalization, Other)
  Sender: FDA-Public Use
  Company Number: HR-009507513-2311HRV008811

PATIENT
  Age: 60 Year
  Sex: Male

DRUGS (1)
  1. KEYTRUDA [Suspect]
     Active Substance: PEMBROLIZUMAB
     Indication: Lung adenocarcinoma
     Dosage: 30 CYCLES TOTALLY
     Dates: start: 2019, end: 202103

REACTIONS (9)
  - Brain oedema [Not Recovered/Not Resolved]
  - Embolism [Unknown]
  - Diabetes mellitus [Unknown]
  - Necrosis [Unknown]
  - Malignant neoplasm progression [Not Recovered/Not Resolved]
  - Muscular weakness [Unknown]
  - Eye disorder [Unknown]
  - Breast pain [Unknown]
  - Hyperacusis [Unknown]

NARRATIVE: CASE EVENT DATE: 20190101
